FAERS Safety Report 9329232 (Version 1)
Quarter: 2013Q2

REPORT INFORMATION
  Report Type: Spontaneous
  Country: US (occurrence: US)
  Receive Date: 20130604
  Receipt Date: 20130604
  Transmission Date: 20140414
  Serious: No
  Sender: FDA-Public Use
  Company Number: US-SANOFI-AVENTIS-2012SA080906

PATIENT
  Age: 57 Year
  Sex: Female

DRUGS (3)
  1. LANTUS SOLOSTAR [Suspect]
     Dosage: DOSE:50 UNIT(S)
     Route: 058
     Dates: start: 2010
  2. SOLOSTAR [Suspect]
     Dates: start: 2010
  3. CYMBALTA [Suspect]
     Indication: DEPRESSION
     Route: 065

REACTIONS (4)
  - Pain in extremity [Unknown]
  - Muscle spasms [Unknown]
  - Musculoskeletal discomfort [Unknown]
  - Gait disturbance [Unknown]
